FAERS Safety Report 9797927 (Version 1)
Quarter: 2014Q1

REPORT INFORMATION
  Report Type: Report from Study
  Country: US (occurrence: US)
  Receive Date: 20140106
  Receipt Date: 20140106
  Transmission Date: 20141002
  Serious: Yes (Other)
  Sender: FDA-Public Use
  Company Number: US-ROCHE-1324781

PATIENT
  Age: 75 Year
  Sex: Male

DRUGS (6)
  1. LUCENTIS [Suspect]
     Indication: PATHOLOGIC MYOPIA
     Route: 050
  2. LUCENTIS [Suspect]
     Indication: CHOROIDAL NEOVASCULARISATION
     Dosage: Q6 WEEKS
     Route: 050
  3. AVASTIN [Suspect]
     Indication: OFF LABEL USE
     Route: 050
  4. TIMOLOL [Concomitant]
     Dosage: OU QAM
     Route: 047
  5. TROPICAMIDE [Concomitant]
     Dosage: OU
     Route: 065
  6. PHENYLEPHRINE [Concomitant]
     Dosage: OU
     Route: 065

REACTIONS (21)
  - Non-infectious endophthalmitis [Unknown]
  - Staphyloma [Unknown]
  - Visual acuity reduced [Unknown]
  - Eyelid ptosis [Unknown]
  - Aphakia [Unknown]
  - Strabismus [Unknown]
  - Myopia [Unknown]
  - Retinal detachment [Unknown]
  - Choroidal neovascularisation [Unknown]
  - Retinoschisis [Unknown]
  - Diabetes mellitus [Unknown]
  - Retinal detachment [Unknown]
  - Vitreous floaters [Unknown]
  - Pain [Unknown]
  - Vitreous floaters [Unknown]
  - Photophobia [Unknown]
  - Overdose [Unknown]
  - Off label use [Unknown]
  - Keratopathy [Unknown]
  - Cutis laxa [Unknown]
  - Pupillary reflex impaired [Unknown]
